FAERS Safety Report 6505094-5 (Version None)
Quarter: 2009Q4

REPORT INFORMATION
  Report Type: 
  Country: None (occurrence: None)
  Receive Date: 20091218
  Receipt Date: 20091203
  Transmission Date: 20100525
  Serious: Yes (Other)
  Sender: FDA-Public Use
  Company Number: PHHY2009FI53237

PATIENT
  Sex: Female

DRUGS (2)
  1. EXELON [Suspect]
     Indication: DEMENTIA ALZHEIMER'S TYPE
     Dosage: 4.6MG/24H, ONE PATCH PER DAY
  2. VOLTAREN [Interacting]
     Indication: ARTHRALGIA

REACTIONS (5)
  - ABNORMAL BEHAVIOUR [None]
  - ARTHRALGIA [None]
  - CONFUSIONAL STATE [None]
  - DAYDREAMING [None]
  - DRUG INTERACTION [None]
